FAERS Safety Report 7273872-3 (Version None)
Quarter: 2011Q1

REPORT INFORMATION
  Report Type: 
  Country: None (occurrence: None)
  Receive Date: 20110203
  Receipt Date: 20110121
  Transmission Date: 20110831
  Serious: Yes (Other)
  Sender: FDA-Public Use
  Company Number: NL-WATSON-2011-01236

PATIENT
  Age: 64 Year
  Sex: Male

DRUGS (1)
  1. METOPROLOL TARTRATE [Suspect]
     Indication: HYPERTENSION
     Dosage: 200 MG, UNKNOWN

REACTIONS (4)
  - POST-TRAUMATIC STRESS DISORDER [None]
  - DEPRESSION [None]
  - ANXIETY [None]
  - NIGHTMARE [None]
